FAERS Safety Report 9162995 (Version 1)
Quarter: 2013Q1

REPORT INFORMATION
  Report Type: Spontaneous
  Country: US (occurrence: US)
  Receive Date: 20130314
  Receipt Date: 20130314
  Transmission Date: 20140127
  Serious: No
  Sender: FDA-Public Use
  Company Number: US-B.I. PHARMACEUTICALS,INC./RIDGEFIELD-2013-BI-06591BP

PATIENT
  Age: 76 Year
  Sex: Female

DRUGS (11)
  1. PRADAXA [Suspect]
     Indication: CEREBROVASCULAR ACCIDENT PROPHYLAXIS
     Dosage: 300 MG
     Route: 048
     Dates: end: 20130305
  2. PRADAXA [Suspect]
     Indication: ATRIAL FIBRILLATION
  3. ALBUTEROL [Concomitant]
     Route: 048
  4. POTASSIUM [Concomitant]
     Route: 048
  5. FLONASE [Concomitant]
     Route: 045
  6. ASPIRIN [Concomitant]
     Dosage: 81 MG
     Route: 048
  7. METOPROLOL [Concomitant]
     Route: 048
  8. PRAVACHOL [Concomitant]
     Route: 048
  9. XANAX [Concomitant]
     Route: 048
  10. LASIX [Concomitant]
     Route: 048
  11. PACERONE [Concomitant]
     Route: 048

REACTIONS (3)
  - Vaginal haemorrhage [Recovered/Resolved]
  - Vomiting [Recovered/Resolved]
  - Epistaxis [Recovered/Resolved]
